FAERS Safety Report 8073069-3 (Version None)
Quarter: 2012Q1

REPORT INFORMATION
  Report Type: 
  Country: None (occurrence: None)
  Receive Date: 20120126
  Receipt Date: 20120118
  Transmission Date: 20120608
  Serious: Yes (Hospitalization)
  Sender: FDA-Public Use
  Company Number: FR-BRISTOL-MYERS SQUIBB COMPANY-16328676

PATIENT
  Age: 66 Year
  Sex: Female

DRUGS (5)
  1. SPRYCEL [Suspect]
     Indication: CHRONIC MYELOID LEUKAEMIA
     Dosage: INTERU ON 19OCT11 AND SPRYCEL 70 MG IS REINTRODUCED. 70MG STOPPED. 50MG ALSO USED COATED TABLET
     Dates: start: 20110321, end: 20110101
  2. LEVOTHYROXINE SODIUM [Concomitant]
     Indication: HYPOTHYROIDISM
  3. HYZAAR [Concomitant]
     Indication: HYPERTENSION
  4. FUROSEMIDE [Concomitant]
     Indication: HYPERTENSION
  5. CELIPROLOL [Concomitant]
     Indication: HYPERTENSION

REACTIONS (2)
  - PLEURAL EFFUSION [None]
  - CARDIAC DISORDER [None]
